FAERS Safety Report 23280324 (Version 1)
Quarter: 2023Q4

REPORT INFORMATION
  Report Type: Other
  Country: None (occurrence: FR)
  Receive Date: 20231210
  Receipt Date: 20231210
  Transmission Date: 20240109
  Serious: Yes (Life-Threatening, Hospitalization)
  Sender: FDA-Public Use
  Company Number: FR-OrBion Pharmaceuticals Private Limited-2149181

PATIENT
  Age: 53 Year
  Sex: Female

DRUGS (3)
  1. VENLAFAXINE HYDROCHLORIDE [Suspect]
     Active Substance: VENLAFAXINE HYDROCHLORIDE
     Route: 065
  2. OXAZEPAM [Suspect]
     Active Substance: OXAZEPAM
     Route: 065
  3. ACETAMINOPHEN [Suspect]
     Active Substance: ACETAMINOPHEN
     Route: 065

REACTIONS (26)
  - Cardiogenic shock [Recovered/Resolved]
  - Coma [Recovered/Resolved]
  - Hypotension [Recovered/Resolved]
  - Heart rate increased [Recovered/Resolved]
  - Respiratory distress [Recovered/Resolved]
  - Sinus tachycardia [Recovered/Resolved]
  - Electrocardiogram QRS complex prolonged [Recovered/Resolved]
  - PaO2/FiO2 ratio decreased [Recovered/Resolved]
  - Blood lactic acid increased [Recovered/Resolved]
  - Blood creatinine increased [Recovered/Resolved]
  - Prothrombin time ratio increased [Recovered/Resolved]
  - Aspartate aminotransferase increased [Recovered/Resolved]
  - Alanine aminotransferase increased [Recovered/Resolved]
  - Pneumonia aspiration [Recovered/Resolved]
  - Ejection fraction decreased [Recovered/Resolved]
  - Troponin I increased [Recovered/Resolved]
  - Brain natriuretic peptide increased [Recovered/Resolved]
  - Antidepressant drug level above therapeutic [Recovered/Resolved]
  - Analgesic drug level above therapeutic [Recovered/Resolved]
  - Benzodiazepine drug level increased [Recovered/Resolved]
  - Acute kidney injury [Recovered/Resolved]
  - Enterobacter pneumonia [Recovered/Resolved]
  - Cardiac failure [Recovered/Resolved]
  - Oliguria [Recovered/Resolved]
  - Anuria [Recovered/Resolved]
  - Toxicity to various agents [Recovered/Resolved]
